FAERS Safety Report 20332110 (Version 1)
Quarter: 2022Q1

REPORT INFORMATION
  Report Type: Spontaneous
  Country: JP (occurrence: JP)
  Receive Date: 20220113
  Receipt Date: 20220113
  Transmission Date: 20220423
  Serious: Yes (Other)
  Sender: FDA-Public Use
  Company Number: CLT-JP-2022-0003-211943

PATIENT
  Sex: Male

DRUGS (3)
  1. VALPROATE SODIUM [Suspect]
     Active Substance: VALPROATE SODIUM
     Route: 050
  2. VALPROATE SODIUM [Suspect]
     Active Substance: VALPROATE SODIUM
  3. PHENYTOIN [Suspect]
     Active Substance: PHENYTOIN
     Indication: Frontal lobe epilepsy
     Route: 050

REACTIONS (2)
  - Baseline foetal heart rate variability disorder [Recovered/Resolved]
  - Foetal exposure during pregnancy [Unknown]
